FAERS Safety Report 9282293 (Version 1)
Quarter: 2013Q2

REPORT INFORMATION
  Report Type: Spontaneous
  Country: US (occurrence: US)
  Receive Date: 20130510
  Receipt Date: 20130510
  Transmission Date: 20140414
  Serious: No
  Sender: FDA-Public Use
  Company Number: US-PFIZER INC-2013145102

PATIENT
  Age: 49 Year
  Sex: Female
  Weight: 82.54 kg

DRUGS (1)
  1. OXYCODONE HYDROCHLORIDE [Suspect]

REACTIONS (1)
  - Drug hypersensitivity [Unknown]
